FAERS Safety Report 8030365-3 (Version None)
Quarter: 2012Q1

REPORT INFORMATION
  Report Type: 
  Country: None (occurrence: None)
  Receive Date: 20120109
  Receipt Date: 20120109
  Transmission Date: 20120608
  Serious: Yes (Life-Threatening, Hospitalization, Other)
  Sender: FDA-Public Use
  Company Number: None

PATIENT
  Age: 70 Year
  Sex: Female
  Weight: 79.378 kg

DRUGS (1)
  1. ESTROGEL [Suspect]
     Indication: HORMONE REPLACEMENT THERAPY
     Dosage: VERY SMALL DAB RUBBED UP ARM
     Route: 061
     Dates: start: 19850715, end: 20110415

REACTIONS (4)
  - DISORIENTATION [None]
  - ABNORMAL BEHAVIOUR [None]
  - DEMENTIA ALZHEIMER'S TYPE [None]
  - LOSS OF CONSCIOUSNESS [None]
